FAERS Safety Report 7639722-8 (Version None)
Quarter: 2011Q3

REPORT INFORMATION
  Report Type: 
  Country: None (occurrence: None)
  Receive Date: 20110727
  Receipt Date: 20110720
  Transmission Date: 20111222
  Serious: Yes (Other)
  Sender: FDA-Public Use
  Company Number: US-CEPHALON-2011003845

PATIENT
  Age: 60 Year
  Sex: Female

DRUGS (3)
  1. WELLBUTRIN SR [Concomitant]
     Dates: start: 20090101, end: 20110701
  2. CYMBALTA [Concomitant]
     Dates: start: 20090101, end: 20110701
  3. PROVIGIL [Suspect]
     Route: 048
     Dates: start: 20090101, end: 20110701

REACTIONS (6)
  - TOXIC EPIDERMAL NECROLYSIS [None]
  - RASH [None]
  - WOUND SECRETION [None]
  - OEDEMA PERIPHERAL [None]
  - SKIN LESION [None]
  - CUTIS LAXA [None]
